FAERS Safety Report 18679994 (Version 11)
Quarter: 2022Q3

REPORT INFORMATION
  Report Type: Spontaneous
  Country: None (occurrence: FR)
  Receive Date: 20201229
  Receipt Date: 20220817
  Transmission Date: 20221026
  Serious: Yes (Hospitalization, Disabling, Other)
  Sender: FDA-Public Use
  Company Number: FR-ASCEND THERAPEUTICS US, LLC-2103597

PATIENT
  Age: 52 Year
  Sex: Female
  Weight: 61 kg

DRUGS (70)
  1. ESTROGEL [Suspect]
     Active Substance: ESTRADIOL
     Indication: Product used for unknown indication
     Route: 065
  2. ESTROGEL [Suspect]
     Active Substance: ESTRADIOL
  3. ESTRADIOL [Suspect]
     Active Substance: ESTRADIOL
     Route: 065
  4. CYPROTERONE [Suspect]
     Active Substance: CYPROTERONE
     Route: 065
     Dates: start: 20090615
  5. CYPROTERONE [Suspect]
     Active Substance: CYPROTERONE
     Route: 065
     Dates: start: 20110404
  6. CYPROTERONE [Suspect]
     Active Substance: CYPROTERONE
     Route: 065
  7. CYPROTERONE [Suspect]
     Active Substance: CYPROTERONE
     Route: 065
     Dates: start: 20110606
  8. DESOGESTREL\ETHINYL ESTRADIOL [Suspect]
     Active Substance: DESOGESTREL\ETHINYL ESTRADIOL
     Route: 065
     Dates: start: 2000, end: 2004
  9. MIRENA [Suspect]
     Active Substance: LEVONORGESTREL
     Route: 015
     Dates: start: 20040901, end: 20050913
  10. ETHINYL ESTRADIOL\LEVONORGESTREL [Suspect]
     Active Substance: ETHINYL ESTRADIOL\LEVONORGESTREL
     Route: 065
     Dates: start: 19980617, end: 19990213
  11. CYPROTERONE ACETATE [Suspect]
     Active Substance: CYPROTERONE ACETATE
     Route: 065
     Dates: start: 20120828, end: 20130826
  12. CYPROTERONE ACETATE [Suspect]
     Active Substance: CYPROTERONE ACETATE
     Route: 065
     Dates: start: 20120828, end: 201506
  13. CYPROTERONE ACETATE [Suspect]
     Active Substance: CYPROTERONE ACETATE
     Route: 065
     Dates: start: 200507, end: 201108
  14. CYPROTERONE ACETATE [Suspect]
     Active Substance: CYPROTERONE ACETATE
     Route: 065
     Dates: start: 199806, end: 1999
  15. CYPROTERONE ACETATE [Suspect]
     Active Substance: CYPROTERONE ACETATE
     Route: 065
     Dates: start: 2000, end: 2004
  16. ESTRADIOL [Suspect]
     Active Substance: ESTRADIOL
     Route: 065
     Dates: start: 20050713
  17. MOTILIUM (DOMPERIDONE), UNKNOWN [Concomitant]
     Route: 065
  18. BI PROFENID (KETOPROFEN), UNK [Concomitant]
     Route: 065
  19. ESTRADIOL [Suspect]
     Active Substance: ESTRADIOL
     Route: 065
     Dates: start: 19990505
  20. DESOGESTREL\ETHINYL ESTRADIOL [Suspect]
     Active Substance: DESOGESTREL\ETHINYL ESTRADIOL
     Route: 065
     Dates: start: 20020227
  21. DESOGESTREL\ETHINYL ESTRADIOL [Suspect]
     Active Substance: DESOGESTREL\ETHINYL ESTRADIOL
     Route: 065
     Dates: start: 20040107
  22. DESOGESTREL\ETHINYL ESTRADIOL [Suspect]
     Active Substance: DESOGESTREL\ETHINYL ESTRADIOL
     Route: 065
     Dates: start: 20021030
  23. DESOGESTREL\ETHINYL ESTRADIOL [Suspect]
     Active Substance: DESOGESTREL\ETHINYL ESTRADIOL
     Route: 065
     Dates: start: 20030611
  24. DESOGESTREL\ETHINYL ESTRADIOL [Suspect]
     Active Substance: DESOGESTREL\ETHINYL ESTRADIOL
     Route: 065
     Dates: start: 20010822
  25. DESOGESTREL\ETHINYL ESTRADIOL [Suspect]
     Active Substance: DESOGESTREL\ETHINYL ESTRADIOL
     Route: 065
     Dates: start: 20000711
  26. MIRENA [Suspect]
     Active Substance: LEVONORGESTREL
     Route: 015
     Dates: start: 20040707
  27. CYPROTERONE ACETATE [Suspect]
     Active Substance: CYPROTERONE ACETATE
     Route: 065
     Dates: start: 19990213
  28. CYPROTERONE ACETATE [Suspect]
     Active Substance: CYPROTERONE ACETATE
     Route: 065
     Dates: start: 20021030
  29. CYPROTERONE ACETATE [Suspect]
     Active Substance: CYPROTERONE ACETATE
     Route: 065
     Dates: start: 20010822
  30. CYPROTERONE ACETATE [Suspect]
     Active Substance: CYPROTERONE ACETATE
     Route: 065
     Dates: start: 20060808
  31. CYPROTERONE ACETATE [Suspect]
     Active Substance: CYPROTERONE ACETATE
     Route: 065
     Dates: start: 19990723
  32. CYPROTERONE ACETATE [Suspect]
     Active Substance: CYPROTERONE ACETATE
     Route: 065
     Dates: start: 20070829
  33. CYPROTERONE ACETATE [Suspect]
     Active Substance: CYPROTERONE ACETATE
     Route: 065
     Dates: start: 20100816
  34. CYPROTERONE ACETATE [Suspect]
     Active Substance: CYPROTERONE ACETATE
     Route: 065
     Dates: start: 20040107
  35. CYPROTERONE ACETATE [Suspect]
     Active Substance: CYPROTERONE ACETATE
     Route: 065
     Dates: start: 20060628
  36. CYPROTERONE ACETATE [Suspect]
     Active Substance: CYPROTERONE ACETATE
     Route: 065
     Dates: start: 20050713
  37. CYPROTERONE ACETATE [Suspect]
     Active Substance: CYPROTERONE ACETATE
     Route: 065
     Dates: start: 20030611
  38. CYPROTERONE ACETATE [Suspect]
     Active Substance: CYPROTERONE ACETATE
     Route: 065
     Dates: start: 20020227
  39. CYPROTERONE ACETATE [Suspect]
     Active Substance: CYPROTERONE ACETATE
     Route: 065
     Dates: start: 20090901
  40. ESTRADIOL [Suspect]
     Active Substance: ESTRADIOL
     Route: 065
     Dates: start: 20060628
  41. ESTRADIOL [Suspect]
     Active Substance: ESTRADIOL
     Route: 065
     Dates: start: 20060808
  42. ESTRADIOL [Suspect]
     Active Substance: ESTRADIOL
     Route: 065
     Dates: start: 20090901
  43. ESTRADIOL [Suspect]
     Active Substance: ESTRADIOL
     Route: 065
     Dates: start: 20070829
  44. ESTRADIOL [Suspect]
     Active Substance: ESTRADIOL
     Route: 065
     Dates: start: 20100816
  45. ESTRADIOL [Concomitant]
     Active Substance: ESTRADIOL
     Route: 065
     Dates: start: 19990505
  46. DUPHASTON [Concomitant]
     Active Substance: DYDROGESTERONE
     Route: 065
     Dates: start: 19990505
  47. Zomig (Zolmitriptan)?Daily Dose: 1 DF for migraine to repeat one hour [Concomitant]
     Route: 065
     Dates: start: 20010822
  48. Zomig?Daily Dose: 1 DF (for migraine to repeat one hour later if neede [Concomitant]
     Route: 065
     Dates: start: 20030611
  49. Zomig?Daily Dose: 1 DF (to repeat 1 hour later if needed) [Concomitant]
     Route: 065
     Dates: start: 20070829
  50. ZOMIG [Concomitant]
     Active Substance: ZOLMITRIPTAN
     Route: 065
     Dates: start: 19990213
  51. Zomig?Daily Dose: 1 DF (to repeat 1 hour later if needed) [Concomitant]
     Route: 065
     Dates: start: 20090901
  52. Zomig?Daily Dose: 1 DF (hour later if needed) [Concomitant]
     Route: 065
     Dates: start: 20060808
  53. Zomig?Daily Dose: 1 DF (to repeat 1 hr later if needed) [Concomitant]
     Route: 065
     Dates: start: 20051006
  54. Zomig?Daily Dose: 1 DF (to repeat one hour later if needed and 4 times [Concomitant]
     Route: 065
     Dates: start: 20020227
  55. ZOMIG [Concomitant]
     Active Substance: ZOLMITRIPTAN
     Route: 065
     Dates: start: 19990318
  56. Zomig?Daily Dose: 1 DF for migraine to repeat one hour later if needed [Concomitant]
     Route: 065
     Dates: start: 20021030
  57. Zomig?Daily Dose: 1 DF (to repeat 1 hour later if needed) [Concomitant]
     Route: 065
     Dates: start: 20080919
  58. Zomig?Daily Dose: 1 DF for migraine to repeat one hour later if needed [Concomitant]
     Route: 065
     Dates: start: 20040107
  59. Polygynax (Nystatin, Neomycin Sulfate, Polymyxin B Sulfate)?Daily Dose [Concomitant]
     Route: 065
  60. MOTILIUM(DOMPERIDONE) [Concomitant]
     Route: 065
  61. ESTRADIOL [Suspect]
     Active Substance: ESTRADIOL
     Route: 065
     Dates: start: 200507, end: 201108
  62. ETHINYL ESTRADIOL\LEVONORGESTREL [Suspect]
     Active Substance: ETHINYL ESTRADIOL\LEVONORGESTREL
     Route: 065
  63. MOTILIUM(DOMPERIDONE) [Concomitant]
     Route: 065
  64. CYPROTERONE ACETATE [Suspect]
     Active Substance: CYPROTERONE ACETATE
     Route: 065
     Dates: start: 20020227
  65. RIZATRIPTAN [Concomitant]
     Active Substance: RIZATRIPTAN
     Route: 065
  66. CYPROTERONE ACETATE [Suspect]
     Active Substance: CYPROTERONE ACETATE
     Route: 065
     Dates: start: 1998, end: 1999
  67. CYPROTERONE ACETATE [Suspect]
     Active Substance: CYPROTERONE ACETATE
     Route: 065
     Dates: start: 2000, end: 2004
  68. ETHINYL ESTRADIOL\LEVONORGESTREL [Suspect]
     Active Substance: ETHINYL ESTRADIOL\LEVONORGESTREL
     Route: 065
     Dates: start: 1998, end: 1999
  69. DESOGESTREL\ETHINYL ESTRADIOL [Suspect]
     Active Substance: DESOGESTREL\ETHINYL ESTRADIOL
     Route: 065
     Dates: start: 2000, end: 2004
  70. CYPROTERONE [Suspect]
     Active Substance: CYPROTERONE
     Route: 065
     Dates: start: 201012, end: 201104

REACTIONS (39)
  - Tension headache [Unknown]
  - Haemorrhage [Unknown]
  - Facial paralysis [Unknown]
  - Cognitive disorder [Recovered/Resolved]
  - Meningioma [Recovered/Resolved]
  - Squamous cell carcinoma [Unknown]
  - Epilepsy [Unknown]
  - Scar [Unknown]
  - Pain of skin [Unknown]
  - Skin depigmentation [Unknown]
  - Post procedural oedema [Unknown]
  - Pain [Unknown]
  - Skin lesion [Unknown]
  - Haematoma [Unknown]
  - Sleep disorder [Unknown]
  - Muscle tightness [Unknown]
  - Fatigue [Unknown]
  - Headache [Unknown]
  - Seizure [Unknown]
  - Hypothermia [Unknown]
  - Musculoskeletal stiffness [Unknown]
  - Psychomotor retardation [Unknown]
  - Feeling abnormal [Unknown]
  - Dysarthria [Unknown]
  - Aphasia [Unknown]
  - Pain in extremity [Unknown]
  - Language disorder [Unknown]
  - Arthralgia [Unknown]
  - Headache [Unknown]
  - Nausea [Unknown]
  - Migraine [Unknown]
  - Intracranial tumour haemorrhage [Recovered/Resolved]
  - Oedema [Recovered/Resolved]
  - Intracranial pressure increased [Recovered/Resolved]
  - Headache [Not Recovered/Not Resolved]
  - Somnolence [Unknown]
  - Hirsutism [Recovered/Resolved]
  - Vomiting [Unknown]
  - Headache [Unknown]

NARRATIVE: CASE EVENT DATE: 20140101
